FAERS Safety Report 8887025 (Version 4)
Quarter: 2013Q3

REPORT INFORMATION
  Report Type: Report from Study
  Country: US (occurrence: US)
  Receive Date: 20121105
  Receipt Date: 20130710
  Transmission Date: 20140515
  Serious: Yes (Hospitalization)
  Sender: FDA-Public Use
  Company Number: US-ELI_LILLY_AND_COMPANY-US201210009456

PATIENT
  Sex: Female

DRUGS (12)
  1. TADALAFIL [Suspect]
     Indication: PULMONARY HYPERTENSION
     Dosage: 40 MG, QD
  2. TADALAFIL [Suspect]
     Dosage: 5 MG, QD
  3. REVATIO [Concomitant]
     Dosage: 20 MG, UNK
  4. PREDNISONE [Concomitant]
     Dosage: 10 MG, UNK
  5. DILTIAZEM [Concomitant]
     Dosage: 120 MG, UNK
  6. LISINOPRIL [Concomitant]
     Dosage: 5 MG, UNK
  7. DIGOXIN [Concomitant]
     Dosage: 125 UG, UNK
  8. PROAIR [Concomitant]
     Dosage: 90 IU, UNK
     Route: 055
  9. TYVASO [Concomitant]
     Dosage: 0.6 MG, UNK
  10. VITAMIN D [Concomitant]
     Dosage: 50000 UNK, UNK
  11. TRAMADOL [Concomitant]
     Dosage: 325 MG, UNK
  12. FOLIC ACID [Concomitant]
     Dosage: 1 MG, UNK

REACTIONS (4)
  - Acute respiratory failure [Recovered/Resolved]
  - Septic shock [Recovered/Resolved]
  - Renal failure acute [Recovered/Resolved]
  - Anaemia [Recovering/Resolving]
